FAERS Safety Report 7261306-4 (Version None)
Quarter: 2011Q1

REPORT INFORMATION
  Report Type: 
  Country: None (occurrence: None)
  Receive Date: 20110130
  Receipt Date: 20101007
  Transmission Date: 20110831
  Serious: No
  Sender: FDA-Public Use
  Company Number: US-ABBOTT-10P-163-0677244-00

PATIENT
  Sex: Male
  Weight: 70.824 kg

DRUGS (3)
  1. HUMIRA [Suspect]
     Indication: CROHN'S DISEASE
     Dates: start: 20100401, end: 20100601
  2. PROBIOTICS [Concomitant]
     Indication: PROBIOTIC THERAPY
  3. BOSWELIA [Concomitant]
     Indication: ANTIINFLAMMATORY THERAPY

REACTIONS (11)
  - LOSS OF LIBIDO [None]
  - INSOMNIA [None]
  - RASH [None]
  - COLD SWEAT [None]
  - SKIN DISORDER [None]
  - EYE INFECTION [None]
  - NERVOUSNESS [None]
  - BLISTER [None]
  - ASTHENIA [None]
  - NIGHT SWEATS [None]
  - SKIN EXFOLIATION [None]
